FAERS Safety Report 7262309-6 (Version None)
Quarter: 2011Q1

REPORT INFORMATION
  Report Type: 
  Country: None (occurrence: None)
  Receive Date: 20110130
  Receipt Date: 20101127
  Transmission Date: 20110831
  Serious: No
  Sender: FDA-Public Use
  Company Number: US-ABBOTT-10P-163-0687986-00

PATIENT
  Age: 37 Year
  Sex: Female

DRUGS (4)
  1. NORVASC [Concomitant]
     Indication: BLOOD PRESSURE INCREASED
  2. TOPROL-XL [Concomitant]
     Indication: BLOOD PRESSURE INCREASED
  3. FLONASE [Concomitant]
     Indication: HYPERSENSITIVITY
     Dosage: 2 SPRAY EACH NOSTRIL DAILY
  4. HUMIRA [Suspect]
     Indication: CROHN'S DISEASE
     Dosage: LOADING DOSE, 2ND INJECTION DUE TODAY
     Dates: start: 20101113

REACTIONS (1)
  - COUGH [None]
